FAERS Safety Report 7009406-8 (Version None)
Quarter: 2010Q3

REPORT INFORMATION
  Report Type: 
  Country: None (occurrence: None)
  Receive Date: 20100921
  Receipt Date: 20100906
  Transmission Date: 20110219
  Serious: Yes (Life-Threatening, Other)
  Sender: FDA-Public Use
  Company Number: 1000014747

PATIENT
  Age: 33 Year
  Sex: Female
  Weight: 92.8 kg

DRUGS (4)
  1. DINOPROSTONE (DINOPROSTONE) (VAGINAL INSERT) [Suspect]
     Indication: LABOUR INDUCTION
     Dosage: 10 MG, VAGINAL
     Route: 067
     Dates: start: 20100613, end: 20100613
  2. MAGNESIUM [Concomitant]
  3. FOLIC ACID [Concomitant]
  4. FERRITIN [Concomitant]

REACTIONS (7)
  - CHILLS [None]
  - DRUG EXPOSURE DURING PREGNANCY [None]
  - HEART RATE INCREASED [None]
  - HYPERTENSION [None]
  - PERINEAL LACERATION [None]
  - SHOCK [None]
  - UTERINE CONTRACTIONS ABNORMAL [None]
